FAERS Safety Report 13479212 (Version 1)
Quarter: 2017Q2

REPORT INFORMATION
  Report Type: Spontaneous
  Country: US (occurrence: US)
  Receive Date: 20170425
  Receipt Date: 20170425
  Transmission Date: 20170830
  Serious: No
  Sender: FDA-Public Use
  Company Number: None

PATIENT
  Age: 63 Year
  Sex: Male
  Weight: 74.91 kg

DRUGS (1)
  1. XIIDRA [Suspect]
     Active Substance: LIFITEGRAST
     Indication: DRY EYE
     Dosage: LIFITEGRAST 5% 10MG 2 DROPS 2X DAILY EYES
     Route: 031
     Dates: start: 20170303

REACTIONS (6)
  - Nausea [None]
  - Dyspepsia [None]
  - Abdominal discomfort [None]
  - Dysgeusia [None]
  - Burning sensation [None]
  - Vision blurred [None]

NARRATIVE: CASE EVENT DATE: 20170303
